FAERS Safety Report 7285498-6 (Version None)
Quarter: 2011Q1

REPORT INFORMATION
  Report Type: 
  Country: None (occurrence: None)
  Receive Date: 20110210
  Receipt Date: 20110202
  Transmission Date: 20110831
  Serious: Yes (Hospitalization)
  Sender: FDA-Public Use
  Company Number: FR-PFIZER INC-2011023636

PATIENT
  Age: 72 Year
  Sex: Male

DRUGS (11)
  1. MOPRAL [Concomitant]
  2. PREVISCAN [Suspect]
     Indication: ATRIAL FIBRILLATION
     Dosage: UNK
     Route: 048
     Dates: start: 20070104, end: 20071010
  3. ZYLORIC ^FAES^ [Suspect]
     Dosage: 300 MG, 1X/DAY
  4. BISOPROLOL FUMARATE [Concomitant]
  5. LASIX [Concomitant]
  6. TAHOR [Suspect]
     Dosage: 10 MG, 1X/DAY
     Route: 048
  7. ATARAX [Concomitant]
  8. UMULINE [Concomitant]
  9. GLUCOPHAGE [Concomitant]
  10. IMOVANE [Concomitant]
  11. DIFFU K [Concomitant]

REACTIONS (2)
  - FALL [None]
  - HAEMATOMA [None]
